FAERS Safety Report 12172534 (Version 3)
Quarter: 2016Q3

REPORT INFORMATION
  Report Type: Spontaneous
  Country: FR (occurrence: FR)
  Receive Date: 20160311
  Receipt Date: 20160819
  Transmission Date: 20161109
  Serious: Yes (Hospitalization, Disabling, Congenital Anomaly)
  Sender: FDA-Public Use
  Company Number: FR-ABBVIE-15P-056-1486569-00

PATIENT
  Sex: Male

DRUGS (1)
  1. DEPAKINE [Suspect]
     Active Substance: VALPROATE SODIUM
     Indication: MATERNAL EXPOSURE TIMING UNSPECIFIED
     Route: 064

REACTIONS (14)
  - Congenital anomaly [Not Recovered/Not Resolved]
  - Microcephaly [Not Recovered/Not Resolved]
  - Cognitive disorder [Unknown]
  - Abnormal behaviour [Not Recovered/Not Resolved]
  - Autism [Unknown]
  - Spine malformation [Not Recovered/Not Resolved]
  - Speech disorder developmental [Not Recovered/Not Resolved]
  - Epilepsy [Not Recovered/Not Resolved]
  - Dysmorphism [Not Recovered/Not Resolved]
  - Bronchitis [Unknown]
  - Emotional disorder [Unknown]
  - Skin infection [Unknown]
  - Foetal exposure during pregnancy [Unknown]
  - Disability [Not Recovered/Not Resolved]

NARRATIVE: CASE EVENT DATE: 1998
